FAERS Safety Report 6864515-9 (Version None)
Quarter: 2010Q3

REPORT INFORMATION
  Report Type: 
  Country: None (occurrence: None)
  Receive Date: 20100721
  Receipt Date: 20080324
  Transmission Date: 20110219
  Serious: No
  Sender: FDA-Public Use
  Company Number: US-PFIZER INC-2008027389

PATIENT
  Sex: Female
  Weight: 68.2 kg

DRUGS (8)
  1. CHANTIX [Suspect]
     Indication: SMOKING CESSATION THERAPY
     Route: 048
     Dates: start: 20080301, end: 20080301
  2. VENLAFAXINE [Concomitant]
  3. CLONAZEPAM [Concomitant]
  4. LYRICA [Concomitant]
  5. PRAVACHOL [Concomitant]
  6. PRINIVIL [Concomitant]
  7. ZANAFLEX [Concomitant]
  8. ANALGESICS [Concomitant]

REACTIONS (2)
  - DIZZINESS [None]
  - FALL [None]
